FAERS Safety Report 20228067 (Version 2)
Quarter: 2022Q1

REPORT INFORMATION
  Report Type: Spontaneous
  Country: US (occurrence: None)
  Receive Date: 20211224
  Receipt Date: 20220105
  Transmission Date: 20220423
  Serious: No
  Sender: FDA-Public Use
  Company Number: 2021A869395

PATIENT
  Sex: Female
  Weight: 77.6 kg

DRUGS (1)
  1. BUDESONIDE\FORMOTEROL\GLYCOPYRRONIUM [Suspect]
     Active Substance: BUDESONIDE\FORMOTEROL\GLYCOPYRRONIUM
     Indication: Lung neoplasm malignant
     Dosage: 160/9/4.8 MCG, 2 PUFFS, TWICE A DAY
     Route: 055
     Dates: start: 202108

REACTIONS (10)
  - Oropharyngeal pain [Unknown]
  - Lymphadenopathy [Unknown]
  - Dysphonia [Unknown]
  - Fatigue [Unknown]
  - Device malfunction [Unknown]
  - Product prescribing error [Unknown]
  - Wrong technique in device usage process [Unknown]
  - Product taste abnormal [Unknown]
  - Product dose omission issue [Unknown]
  - Device delivery system issue [Unknown]
